FAERS Safety Report 4357754-2 (Version None)
Quarter: 2004Q2

REPORT INFORMATION
  Report Type: 
  Country: None (occurrence: None)
  Receive Date: 20040513
  Receipt Date: 20040419
  Transmission Date: 20050107
  Serious: Yes (Other)
  Sender: FDA-Public Use
  Company Number: GB-BRISTOL-MYERS SQUIBB COMPANY-12585790

PATIENT
  Sex: Female

DRUGS (1)
  1. HOLOXAN [Suspect]

REACTIONS (1)
  - ENCEPHALOPATHY [None]
